FAERS Safety Report 6691275-7 (Version None)
Quarter: 2010Q2

REPORT INFORMATION
  Report Type: 
  Country: None (occurrence: None)
  Receive Date: 20100422
  Receipt Date: 20100412
  Transmission Date: 20101027
  Serious: Yes (Hospitalization)
  Sender: FDA-Public Use
  Company Number: FR-JNJFOC-20100403437

PATIENT
  Sex: Male

DRUGS (5)
  1. REMINYL [Suspect]
     Indication: DEMENTIA ALZHEIMER'S TYPE
     Route: 048
  2. DEROXAT [Concomitant]
     Route: 065
  3. NEURONTIN [Concomitant]
     Indication: NEURALGIA
     Route: 065
  4. ALDACTAZINE [Concomitant]
     Indication: HYPERTENSION
     Route: 065
  5. PROTON PUMP INHIBITOR [Concomitant]
     Route: 065

REACTIONS (5)
  - CONVULSION [None]
  - FALL [None]
  - LOSS OF CONSCIOUSNESS [None]
  - MALAISE [None]
  - SINOATRIAL BLOCK [None]
